FAERS Safety Report 6541795-0 (Version None)
Quarter: 2010Q1

REPORT INFORMATION
  Report Type: 
  Country: None (occurrence: None)
  Receive Date: 20100119
  Receipt Date: 20100111
  Transmission Date: 20100710
  Serious: Yes (Death, Hospitalization, Other)
  Sender: FDA-Public Use
  Company Number: PHHY2009BR44646

PATIENT
  Sex: Male

DRUGS (1)
  1. EXELON [Suspect]
     Dosage: 1.5 MG, QD
     Route: 048
     Dates: start: 20090601

REACTIONS (5)
  - BACK PAIN [None]
  - CARDIO-RESPIRATORY ARREST [None]
  - HYPERPLASIA [None]
  - INFECTION [None]
  - SEPTIC SHOCK [None]
